FAERS Safety Report 5025863-0 (Version None)
Quarter: 2006Q2

REPORT INFORMATION
  Report Type: 
  Country: None (occurrence: None)
  Receive Date: 20060608
  Receipt Date: 20060608
  Transmission Date: 20061013
  Serious: Yes (Other)
  Sender: FDA-Public Use
  Company Number: None

PATIENT
  Sex: Male
  Weight: 85.7298 kg

DRUGS (3)
  1. LEUKINE [Suspect]
     Indication: AGRANULOCYTOSIS
     Dosage: 250 MG QD X 21 D , OFF 7 D SQ
     Route: 058
     Dates: start: 20060331, end: 20060420
  2. LEUKINE [Suspect]
     Indication: MALIGNANT MELANOMA
     Dosage: 250 MG QD X21D, OF 7 D SQ
     Route: 058
     Dates: start: 20060428, end: 20060518
  3. LEUKINE [Suspect]
     Dates: start: 20060526, end: 20060616

REACTIONS (3)
  - INJECTION SITE IRRITATION [None]
  - PAIN [None]
  - PHARMACEUTICAL PRODUCT COMPLAINT [None]
